FAERS Safety Report 7480586-3 (Version None)
Quarter: 2011Q2

REPORT INFORMATION
  Report Type: 
  Country: None (occurrence: None)
  Receive Date: 20110505
  Receipt Date: 20110418
  Transmission Date: 20111010
  Serious: Yes (Hospitalization)
  Sender: FDA-Public Use
  Company Number: 056-21880-11022194

PATIENT
  Age: 60 Year
  Sex: Male

DRUGS (4)
  1. BORTEZOMIB [Suspect]
     Indication: MULTIPLE MYELOMA
     Dosage: 2.6 MG,
     Dates: start: 20101227, end: 20110210
  2. REVLIMID [Suspect]
     Indication: MULTIPLE MYELOMA
     Dosage: 25 MG, PO
     Route: 048
     Dates: start: 20101227, end: 20110214
  3. DEXAMETHASONE [Suspect]
     Indication: MULTIPLE MYELOMA
     Dosage: 20 MG,
     Dates: start: 20101227, end: 20110214
  4. COLCHICINE [Concomitant]

REACTIONS (20)
  - HAEMOGLOBIN DECREASED [None]
  - DYSPNOEA [None]
  - PLATELET COUNT INCREASED [None]
  - NEUTROPHIL COUNT INCREASED [None]
  - FIBRIN INCREASED [None]
  - BLOOD ALBUMIN DECREASED [None]
  - HEPATIC STEATOSIS [None]
  - PYREXIA [None]
  - ARTHRALGIA [None]
  - HEPATITIS B CORE ANTIGEN POSITIVE [None]
  - CYTOLYTIC HEPATITIS [None]
  - CYTOMEGALOVIRUS TEST POSITIVE [None]
  - VARICELLA VIRUS TEST POSITIVE [None]
  - WHITE BLOOD CELL COUNT INCREASED [None]
  - JOINT SWELLING [None]
  - HAEMOLYSIS [None]
  - PROTHROMBIN TIME PROLONGED [None]
  - EPSTEIN-BARR VIRUS TEST POSITIVE [None]
  - JOINT WARMTH [None]
  - OVERDOSE [None]
